FAERS Safety Report 17574845 (Version 6)
Quarter: 2022Q3

REPORT INFORMATION
  Report Type: Report from Study
  Country: JP (occurrence: JP)
  Receive Date: 20200324
  Receipt Date: 20220812
  Transmission Date: 20221027
  Serious: Yes (Hospitalization)
  Sender: FDA-Public Use
  Company Number: JP-ONO-2020JP007242

PATIENT
  Age: 68 Year
  Sex: Female
  Weight: 85.2 kg

DRUGS (28)
  1. ETELCALCETIDE [Suspect]
     Active Substance: ETELCALCETIDE
     Indication: Hyperparathyroidism secondary
     Dosage: 5 MILLIGRAM, Q56H
     Route: 010
     Dates: start: 20181114, end: 20190426
  2. ETELCALCETIDE [Suspect]
     Active Substance: ETELCALCETIDE
     Dosage: 2.5 MILLIGRAM, Q56H
     Route: 010
     Dates: start: 20190429, end: 20190614
  3. ETELCALCETIDE [Suspect]
     Active Substance: ETELCALCETIDE
     Dosage: 5 MILLIGRAM, Q56H
     Route: 010
     Dates: start: 20190617, end: 20190628
  4. ETELCALCETIDE [Suspect]
     Active Substance: ETELCALCETIDE
     Dosage: 10 MILLIGRAM, Q56H
     Route: 010
     Dates: start: 20190701, end: 20210630
  5. ETELCALCETIDE [Suspect]
     Active Substance: ETELCALCETIDE
     Dosage: 7.5 MILLIGRAM, Q56H
     Route: 010
     Dates: start: 20210702
  6. EPOETIN ALFA [Concomitant]
     Active Substance: ERYTHROPOIETIN
     Dosage: 4500 INTERNATIONAL UNIT, QWK
     Route: 065
     Dates: end: 20191127
  7. EPOETIN ALFA [Concomitant]
     Active Substance: ERYTHROPOIETIN
     Dosage: 6000 INTERNATIONAL UNIT, QWK
     Route: 065
     Dates: start: 20191206, end: 20200706
  8. EPOETIN ALFA [Concomitant]
     Active Substance: ERYTHROPOIETIN
     Dosage: 4500 INTERNATIONAL UNIT, QWK
     Route: 065
     Dates: start: 20200710, end: 20200909
  9. EPOETIN ALFA [Concomitant]
     Active Substance: ERYTHROPOIETIN
     Dosage: 3000 INTERNATIONAL UNIT, QWK
     Route: 065
     Dates: start: 20200914, end: 20201120
  10. EPOETIN ALFA [Concomitant]
     Active Substance: ERYTHROPOIETIN
     Dosage: 4500 INTERNATIONAL UNIT, QWK
     Route: 065
     Dates: start: 20201123, end: 20210113
  11. EPOETIN ALFA [Concomitant]
     Active Substance: ERYTHROPOIETIN
     Dosage: 3000 INTERNATIONAL UNIT, QWK
     Route: 065
     Dates: start: 20210118, end: 20210430
  12. EPOETIN ALFA [Concomitant]
     Active Substance: ERYTHROPOIETIN
     Dosage: 4500 INTERNATIONAL UNIT, QWK
     Route: 065
     Dates: start: 20210503, end: 20210512
  13. EPOETIN ALFA [Concomitant]
     Active Substance: ERYTHROPOIETIN
     Dosage: 6000 INTERNATIONAL UNIT, QWK
     Route: 065
     Dates: start: 20210514, end: 20210528
  14. ROCALTROL [Concomitant]
     Active Substance: CALCITRIOL
     Dosage: 1.5 MICROGRAM, Q56H
     Route: 042
     Dates: start: 20180912, end: 20190213
  15. ROCALTROL [Concomitant]
     Active Substance: CALCITRIOL
     Dosage: 1.0 MICROGRAM, Q56H
     Route: 042
     Dates: start: 20190215, end: 20190412
  16. ROCALTROL [Concomitant]
     Active Substance: CALCITRIOL
     Dosage: 0.5 MICROGRAM, Q56H
     Route: 042
     Dates: start: 20190415, end: 20191108
  17. ROCALTROL [Concomitant]
     Active Substance: CALCITRIOL
     Dosage: 1 MICROGRAM, Q56H
     Route: 042
     Dates: start: 20191111, end: 20210423
  18. ROCALTROL [Concomitant]
     Active Substance: CALCITRIOL
     Dosage: 1 MICROGRAM, Q84H
     Route: 042
     Dates: start: 20210426
  19. FERRIC CITRATE ANHYDROUS [Concomitant]
     Active Substance: FERRIC CITRATE ANHYDROUS
     Dosage: 1500 MILLIGRAM, QD
     Route: 065
     Dates: end: 20190407
  20. CALTAN [Concomitant]
     Active Substance: CALCIUM CARBONATE
     Dosage: 1500 MILLIGRAM, QD
     Route: 065
     Dates: end: 20190407
  21. P-tol [Concomitant]
     Dosage: 750 MILLIGRAM, QD
     Route: 065
     Dates: start: 20190408, end: 20190414
  22. FOSRENOL [Concomitant]
     Active Substance: LANTHANUM CARBONATE
     Dosage: 750 MILLIGRAM, QD
     Route: 065
     Dates: start: 20190415, end: 20191027
  23. FOSRENOL [Concomitant]
     Active Substance: LANTHANUM CARBONATE
     Dosage: 1500 MILLIGRAM, QD
     Route: 065
     Dates: start: 20191028
  24. Fesin [Concomitant]
     Dosage: 40 MILLIGRAM, QWK
     Route: 065
     Dates: end: 20181126
  25. Fesin [Concomitant]
     Dosage: 40 MILLIGRAM, QWK
     Route: 065
     Dates: start: 20200210, end: 20200413
  26. Fesin [Concomitant]
     Dosage: 80 MILLIGRAM, QWK
     Route: 065
     Dates: start: 20200527, end: 20200727
  27. Fesin [Concomitant]
     Dosage: 40 MILLIGRAM, QWK
     Route: 065
     Dates: start: 20201116, end: 20210118
  28. Fesin [Concomitant]
     Dosage: 40 MILLIGRAM, QWK
     Route: 065
     Dates: start: 20210524, end: 20210621

REACTIONS (4)
  - Patella fracture [Recovering/Resolving]
  - Fall [Unknown]
  - Fractured sacrum [Recovering/Resolving]
  - Fall [Unknown]

NARRATIVE: CASE EVENT DATE: 20191126
